FAERS Safety Report 9880177 (Version 1)
Quarter: 2014Q1

REPORT INFORMATION
  Report Type: Spontaneous
  Country: US (occurrence: US)
  Receive Date: 20140207
  Receipt Date: 20140207
  Transmission Date: 20141002
  Serious: No
  Sender: FDA-Public Use
  Company Number: US-BIOGENIDEC-2014BI009161

PATIENT
  Age: 68 Year
  Sex: Female

DRUGS (12)
  1. TECFIDERA [Suspect]
     Indication: MULTIPLE SCLEROSIS
     Route: 048
  2. AMLODIPINE BESYLATE [Concomitant]
  3. ATACAND [Concomitant]
  4. CELEBREX [Concomitant]
  5. CYCLOBENZAPRINE [Concomitant]
  6. LEVOTHYROXINE SODIUM [Concomitant]
  7. LEXAPRO [Concomitant]
  8. LISINOPRIL [Concomitant]
  9. LORAZEPAM [Concomitant]
  10. METPROTOL TARTRATE [Concomitant]
  11. SIMVASTATIN [Concomitant]
  12. TIZANIDINE [Concomitant]

REACTIONS (2)
  - Decreased appetite [Unknown]
  - Dysgeusia [Unknown]
